FAERS Safety Report 23710304 (Version 2)
Quarter: 2024Q2

REPORT INFORMATION
  Report Type: Spontaneous
  Country: US (occurrence: US)
  Receive Date: 20240405
  Receipt Date: 20240416
  Transmission Date: 20240716
  Serious: Yes (Hospitalization, Other)
  Sender: FDA-Public Use
  Company Number: US-MLMSERVICE-20240321-4902827-1

PATIENT
  Age: 27 Year
  Sex: Female

DRUGS (1)
  1. METHOTREXATE [Suspect]
     Active Substance: METHOTREXATE
     Indication: Gestational trophoblastic tumour
     Dosage: 0.4 MILLIGRAM/KILOGRAM, ONCE A DAY (5-DAY REGIMEN 0.4 MG/KG/DAY EVERY 2 WEEKS/ ON CYCLE 1 DAY 4)
     Route: 065

REACTIONS (11)
  - Dysphemia [Unknown]
  - Eye movement disorder [Unknown]
  - Headache [Unknown]
  - Tremor [Unknown]
  - Hyperhidrosis [Unknown]
  - Dizziness [Unknown]
  - Chest pain [Unknown]
  - Chills [Unknown]
  - Somnolence [Unknown]
  - Erythema [Unknown]
  - Drug intolerance [Unknown]
